FAERS Safety Report 21929465 (Version 1)
Quarter: 2023Q1

REPORT INFORMATION
  Report Type: Spontaneous
  Country: US (occurrence: US)
  Receive Date: 20230131
  Receipt Date: 20230131
  Transmission Date: 20230418
  Serious: Yes (Hospitalization, Other)
  Sender: FDA-Public Use
  Company Number: US-UCBSA-2022042668

PATIENT
  Sex: Female
  Weight: 74 kg

DRUGS (2)
  1. KEPPRA [Suspect]
     Active Substance: LEVETIRACETAM
     Indication: Seizure
     Dosage: UNK
  2. CLONAZEPAM [Concomitant]
     Active Substance: CLONAZEPAM
     Indication: Tremor

REACTIONS (1)
  - Seizure [Recovered/Resolved]
